FAERS Safety Report 8484014-0 (Version None)
Quarter: 2012Q2

REPORT INFORMATION
  Report Type: 
  Country: None (occurrence: None)
  Receive Date: 20120402
  Receipt Date: 20110215
  Transmission Date: 20120825
  Serious: Yes (Hospitalization, Other)
  Sender: FDA-Public Use
  Company Number: A-US2011-45184

PATIENT
  Age: 43 Year
  Sex: Female

DRUGS (9)
  1. OMEPRAZOLE [Concomitant]
  2. HEPARIN [Concomitant]
  3. DIGOXIN [Concomitant]
  4. DIPHENHYDRAMINE HCL [Concomitant]
  5. TRACLEER [Concomitant]
  6. COUMADIN [Concomitant]
  7. LASIX [Concomitant]
  8. EPIPEN [Concomitant]
  9. EPOPROSTENOL SODIUM [Suspect]
     Indication: PULMONARY ARTERIAL HYPERTENSION
     Dosage: 40 NG/KG, PER MIN, INTRAVENOUS
     Route: 042
     Dates: start: 20100706

REACTIONS (3)
  - VULVOVAGINAL PRURITUS [None]
  - CORYNEBACTERIUM INFECTION [None]
  - BACTERAEMIA [None]
